FAERS Safety Report 11747002 (Version 2)
Quarter: 2015Q4

REPORT INFORMATION
  Report Type: Spontaneous
  Country: IT (occurrence: IT)
  Receive Date: 20151117
  Receipt Date: 20151130
  Transmission Date: 20160304
  Serious: Yes (Hospitalization)
  Sender: FDA-Public Use
  Company Number: IT-PFIZER INC-2015388869

PATIENT
  Age: 71 Year
  Sex: Male

DRUGS (2)
  1. SEROQUEL [Concomitant]
     Active Substance: QUETIAPINE FUMARATE
     Indication: PRESENILE DEMENTIA
     Dosage: 75 MG, UNK
     Dates: start: 20150501, end: 20151107
  2. HALCION [Suspect]
     Active Substance: TRIAZOLAM
     Indication: AGITATION
     Dosage: 0.5 MG, DAILY
     Dates: start: 20150501, end: 20151107

REACTIONS (3)
  - Dehydration [Recovering/Resolving]
  - Overdose [Unknown]
  - Sopor [Recovering/Resolving]

NARRATIVE: CASE EVENT DATE: 201511
